FAERS Safety Report 10329807 (Version 2)
Quarter: 2014Q3

REPORT INFORMATION
  Report Type: Spontaneous
  Country: JP (occurrence: JP)
  Receive Date: 20140721
  Receipt Date: 20140721
  Transmission Date: 20150326
  Serious: Yes (Hospitalization, Other)
  Sender: FDA-Public Use
  Company Number: JP-SA-2014SA089294

PATIENT
  Age: 58 Year
  Sex: Male
  Weight: 90.8 kg

DRUGS (10)
  1. BAYASPIRIN [Suspect]
     Active Substance: ASPIRIN
     Indication: PRODUCT USED FOR UNKNOWN INDICATION
     Route: 065
     Dates: start: 20131031
  2. RENIVACE [Concomitant]
     Active Substance: ENALAPRIL
     Dates: start: 20131102
  3. PARIET [Concomitant]
     Active Substance: RABEPRAZOLE SODIUM
     Dates: start: 20131106
  4. ARTIST [Concomitant]
     Active Substance: CARVEDILOL
     Dates: start: 20131104
  5. ELIQUIS [Suspect]
     Active Substance: APIXABAN
     Indication: PRODUCT USED FOR UNKNOWN INDICATION
     Route: 065
     Dates: start: 20131127
  6. FEBURIC [Concomitant]
     Active Substance: FEBUXOSTAT
     Dates: start: 20140115
  7. CRESTOR [Concomitant]
     Active Substance: ROSUVASTATIN CALCIUM
     Route: 048
     Dates: start: 20131102
  8. EUGLUCON [Concomitant]
     Active Substance: GLYBURIDE
     Route: 048
  9. PLAVIX [Suspect]
     Active Substance: CLOPIDOGREL BISULFATE
     Indication: PRODUCT USED FOR UNKNOWN INDICATION
     Route: 065
     Dates: start: 20131031
  10. METGLUCO [Concomitant]
     Active Substance: METFORMIN HYDROCHLORIDE
     Route: 048

REACTIONS (3)
  - Cardiac failure congestive [Recovering/Resolving]
  - Haemorrhagic cerebral infarction [Recovering/Resolving]
  - Liver disorder [Not Recovered/Not Resolved]

NARRATIVE: CASE EVENT DATE: 20140418
